FAERS Safety Report 11331399 (Version 1)
Quarter: 2015Q3

REPORT INFORMATION
  Report Type: Spontaneous
  Country: US (occurrence: US)
  Receive Date: 20150803
  Receipt Date: 20150803
  Transmission Date: 20151125
  Serious: No
  Sender: FDA-Public Use
  Company Number: US-TEVA-582435USA

PATIENT
  Sex: Female

DRUGS (16)
  1. SERTRALINE [Concomitant]
     Active Substance: SERTRALINE HYDROCHLORIDE
     Route: 065
  2. SUMATRIPTAN. [Concomitant]
     Active Substance: SUMATRIPTAN
     Route: 065
  3. CYCLOBENZAPRINE [Concomitant]
     Active Substance: CYCLOBENZAPRINE
     Route: 065
  4. AMOXICILINA CLAV [Concomitant]
     Route: 065
  5. CLONAZEPAM. [Concomitant]
     Active Substance: CLONAZEPAM
     Route: 065
  6. SULFAMETHOXAZOLE AND TRIMETHOPRIM DOUBLE STRENGTH [Concomitant]
     Active Substance: SULFAMETHOXAZOLE\TRIMETHOPRIM
     Route: 065
  7. LISINOPRIL. [Concomitant]
     Active Substance: LISINOPRIL
     Route: 065
  8. PHENAZOPYRIDINE. [Concomitant]
     Active Substance: PHENAZOPYRIDINE
     Route: 065
  9. GABAPENTIN. [Concomitant]
     Active Substance: GABAPENTIN
     Route: 065
  10. TOPIRAMATE. [Concomitant]
     Active Substance: TOPIRAMATE
     Route: 065
  11. COPAXONE [Suspect]
     Active Substance: GLATIRAMER ACETATE
     Indication: MULTIPLE SCLEROSIS
     Dates: start: 20150725
  12. METOPROLIN [Concomitant]
     Route: 065
  13. HYDROCODONE BITARTRATE AND ACETAMINOPHEN [Concomitant]
     Active Substance: ACETAMINOPHEN\HYDROCODONE BITARTRATE
     Route: 065
  14. LAMOTRIGINE. [Concomitant]
     Active Substance: LAMOTRIGINE
     Route: 065
  15. MONTELUKAST [Concomitant]
     Active Substance: MONTELUKAST SODIUM
     Route: 065
  16. QUETIAPINE [Concomitant]
     Active Substance: QUETIAPINE
     Route: 065

REACTIONS (1)
  - Headache [Unknown]
